FAERS Safety Report 6767439-0 (Version None)
Quarter: 2010Q2

REPORT INFORMATION
  Report Type: 
  Country: None (occurrence: None)
  Receive Date: 20100614
  Receipt Date: 20100531
  Transmission Date: 20101027
  Serious: Yes (Hospitalization, Other)
  Sender: FDA-Public Use
  Company Number: PHHY2009BR38681

PATIENT
  Age: 56 Year
  Sex: Male
  Weight: 75 kg

DRUGS (8)
  1. DIOVAN HCT [Suspect]
     Indication: HYPERTENSION
     Dosage: 1 DF, BID
     Route: 048
  2. RIVOTRIL [Concomitant]
     Indication: PANIC DISORDER
     Dosage: 1 DF, BID
  3. CITALOPRAM [Concomitant]
     Indication: PANIC DISORDER
     Dosage: 1 TABLET DAILY
  4. CITALOPRAM [Concomitant]
     Dosage: 2 TABLETS DAILY
  5. SIMVASTATIN [Concomitant]
     Indication: BLOOD TRIGLYCERIDES INCREASED
     Dosage: 1 TABLET AT NIGHT
     Route: 048
  6. ATENOLOL [Concomitant]
     Indication: HYPERTENSION
     Dosage: 1 DF, BID
     Route: 048
  7. AMLODIPINE BESYLATE [Concomitant]
     Indication: HYPERTENSION
     Dosage: 1 DF, BID
     Route: 048
  8. ATENSINA [Concomitant]
     Indication: HYPERTENSION
     Route: 048

REACTIONS (7)
  - APTYALISM [None]
  - DRY MOUTH [None]
  - HYPERTENSION [None]
  - LIP DRY [None]
  - PROSTATE CANCER [None]
  - SURGERY [None]
  - TONGUE DRY [None]
